FAERS Safety Report 25951069 (Version 1)
Quarter: 2025Q4

REPORT INFORMATION
  Report Type: Spontaneous
  Country: EU (occurrence: EU)
  Receive Date: 20251023
  Receipt Date: 20251023
  Transmission Date: 20260118
  Serious: Yes (Disabling, Other)
  Sender: AMGEN
  Company Number: EU-AMGEN-LTUSP2025206790

PATIENT
  Age: 38 Year
  Sex: Female

DRUGS (7)
  1. FILGRASTIM [Suspect]
     Active Substance: FILGRASTIM
     Indication: Autologous haematopoietic stem cell transplant
     Dosage: 10 MICROGRAM/KILOGRAM, STARTED ON DAY +7
     Route: 058
  2. CYCLOPHOSPHAMIDE [Suspect]
     Active Substance: CYCLOPHOSPHAMIDE
     Indication: Autologous haematopoietic stem cell transplant
     Dosage: 2 GRAM PER SQUARE METRE
     Route: 065
  3. CYCLOPHOSPHAMIDE [Suspect]
     Active Substance: CYCLOPHOSPHAMIDE
     Dosage: 50 MILLIGRAM/KILOGRAM, ON DAYS -5, -4, -3, AND -2
     Route: 065
  4. MESNA [Suspect]
     Active Substance: MESNA
     Indication: Prophylaxis
     Dosage: UNK
     Route: 040
  5. THYMOCYTE IMMUNE GLOBULIN NOS [Suspect]
     Active Substance: THYMOCYTE IMMUNE GLOBULIN NOS
     Indication: Autologous haematopoietic stem cell transplant
     Dosage: 0.5 MILLIGRAM/KILOGRAM ON DAY -5
     Route: 065
  6. THYMOCYTE IMMUNE GLOBULIN NOS [Suspect]
     Active Substance: THYMOCYTE IMMUNE GLOBULIN NOS
     Dosage: 1.5 MILLIGRAM/KILOGRAM ON DAYS -4,-3,-2, AND -1
     Route: 065
  7. METHYLPREDNISOLONE [Suspect]
     Active Substance: METHYLPREDNISOLONE
     Indication: Autologous haematopoietic stem cell transplant
     Dosage: 1000 MILLIGRAM, ON DAYS -5, -4, -3, -2, AND -1
     Route: 065

REACTIONS (1)
  - Secondary progressive multiple sclerosis [Unknown]
